FAERS Safety Report 10033401 (Version 2)
Quarter: 2014Q1

REPORT INFORMATION
  Report Type: Spontaneous
  Country: US (occurrence: US)
  Receive Date: 20140325
  Receipt Date: 20140325
  Transmission Date: 20141002
  Serious: No
  Sender: FDA-Public Use
  Company Number: US-UCBSA-107551

PATIENT
  Age: 52 Year
  Sex: Female

DRUGS (6)
  1. KEPPRA XR [Suspect]
     Indication: CONVULSION
     Dosage: STRENGTH 500 MG, EXPIRATION DATE: 29-FEB-2016, ONCE AM
  2. KEPPRA [Suspect]
     Indication: CONVULSION
     Dosage: TWICE DAILY
     Dates: start: 2007
  3. CORTISONE [Suspect]
     Dates: start: 20131012
  4. HYDROCODONE [Concomitant]
     Indication: PAIN
     Dosage: 10-325 , 1-2 TABLETS WHEN NEEDED
  5. IRON SUPPLEMENT [Concomitant]
  6. TEMADOR [Concomitant]
     Indication: BRAIN CANCER METASTATIC
     Dates: start: 2007, end: 2008

REACTIONS (8)
  - Hypoaesthesia [Not Recovered/Not Resolved]
  - Convulsion [Unknown]
  - Back injury [Not Recovered/Not Resolved]
  - Tremor [Unknown]
  - Partial seizures [Not Recovered/Not Resolved]
  - Vertigo [Recovered/Resolved]
  - Nausea [Recovered/Resolved]
  - Rotator cuff syndrome [Not Recovered/Not Resolved]
